FAERS Safety Report 5227052-3 (Version None)
Quarter: 2007Q1

REPORT INFORMATION
  Report Type: 
  Country: None (occurrence: None)
  Receive Date: 20070202
  Receipt Date: 20070123
  Transmission Date: 20070707
  Serious: Yes (Death)
  Sender: FDA-Public Use
  Company Number: 2006AP06111

PATIENT
  Age: 77 Year
  Sex: Female
  Weight: 50 kg

DRUGS (5)
  1. IRESSA [Suspect]
     Indication: NON-SMALL CELL LUNG CANCER
     Route: 048
     Dates: start: 20050302, end: 20050901
  2. IRESSA [Suspect]
     Route: 048
     Dates: start: 20050901, end: 20061216
  3. NORVASC [Concomitant]
     Indication: HYPERTENSION
     Route: 048
     Dates: start: 20050302, end: 20061216
  4. TAKEPRON [Concomitant]
     Indication: GASTROOESOPHAGEAL REFLUX DISEASE
     Route: 048
     Dates: start: 20050721, end: 20061216
  5. RADIOTHERAPY [Concomitant]
     Dosage: 36 GY ADMINISTERED TO TH7 AND 8
     Dates: start: 20050215, end: 20050228

REACTIONS (2)
  - CARDIO-RESPIRATORY ARREST [None]
  - RASH [None]
